FAERS Safety Report 22536414 (Version 1)
Quarter: 2023Q2

REPORT INFORMATION
  Report Type: Spontaneous
  Country: CN (occurrence: None)
  Receive Date: 20230608
  Receipt Date: 20230608
  Transmission Date: 20230721
  Serious: Yes (Other)
  Sender: FDA-Public Use
  Company Number: 2023A125012

PATIENT
  Age: 22 Year
  Sex: Male
  Weight: 78 kg

DRUGS (1)
  1. NEXIUM [Suspect]
     Active Substance: ESOMEPRAZOLE MAGNESIUM
     Indication: Gastrooesophageal reflux disease
     Route: 048
     Dates: start: 20230522

REACTIONS (6)
  - Blood pressure increased [Recovered/Resolved]
  - Intracranial pressure increased [Recovered/Resolved]
  - Liver injury [Unknown]
  - Renal pain [Recovered/Resolved]
  - Peripheral coldness [Recovered/Resolved]
  - Headache [Recovered/Resolved]

NARRATIVE: CASE EVENT DATE: 20230525
